FAERS Safety Report 8729768 (Version 2)
Quarter: 2012Q4

REPORT INFORMATION
  Report Type: 
  Country: NL (occurrence: NL)
  Receive Date: 20120817
  Receipt Date: 20120830
  Transmission Date: 20130627
  Serious: Yes (Other)
  Sender: FDA-Public Use
  Company Number: NL-PFIZER INC-2012198492

PATIENT
  Age: 69 Year
  Sex: Male

DRUGS (7)
  1. EPIPEN [Suspect]
     Indication: ALLERGY TO ARTHROPOD STING
     Dosage: 1 DF, 1x/day
     Dates: start: 20120720, end: 20120720
  2. PARIET [Concomitant]
  3. SIMVASTATIN [Concomitant]
  4. PERINDOPRIL ERBUMINE [Concomitant]
     Dosage: 4 mg, 1x/day
  5. ASCAL CARDIO [Concomitant]
     Dosage: 100 mg, 1x/day
     Route: 048
  6. METFORMIN [Concomitant]
     Dosage: 500 mg, 3x/day
  7. ALUTARD SQ ^ALK^ [Concomitant]
     Dosage: according to scheme
     Dates: start: 20120308

REACTIONS (3)
  - Device failure [Recovered/Resolved]
  - Circulatory collapse [Recovered/Resolved]
  - Underdose [Recovered/Resolved]
